FAERS Safety Report 21308064 (Version 2)
Quarter: 2022Q3

REPORT INFORMATION
  Report Type: Spontaneous
  Country: IT (occurrence: IT)
  Receive Date: 20220908
  Receipt Date: 20220921
  Transmission Date: 20221026
  Serious: Yes (Hospitalization)
  Sender: FDA-Public Use
  Company Number: IT-TEVA-2022-IT-2070306

PATIENT
  Age: 78 Year
  Sex: Female

DRUGS (11)
  1. CALCITRIOL [Suspect]
     Active Substance: CALCITRIOL
     Indication: Hypocalcaemia
     Dosage: .75 MICROGRAM DAILY; DURING DISCHARGE
     Route: 048
  2. CALCITRIOL [Suspect]
     Active Substance: CALCITRIOL
     Dosage: .5 MICROGRAM DAILY;
     Route: 048
  3. CHOLECALCIFEROL [Suspect]
     Active Substance: CHOLECALCIFEROL
     Indication: Vitamin D deficiency
     Dosage: 1666.6667 IU (INTERNATIONAL UNIT) DAILY; DURING DISCHARGE
     Route: 048
  4. LEVOTHYROXINE SODIUM [Suspect]
     Active Substance: LEVOTHYROXINE SODIUM
     Indication: Papillary thyroid cancer
     Route: 065
     Dates: start: 20210601
  5. LENVATINIB [Suspect]
     Active Substance: LENVATINIB
     Indication: Papillary thyroid cancer
     Dosage: 10 MILLIGRAM DAILY; INITIAL DOSE
     Route: 065
     Dates: start: 20210601
  6. CALCIUM CARBONATE [Suspect]
     Active Substance: CALCIUM CARBONATE
     Indication: Hypocalcaemia
     Dosage: 6 GRAM DAILY; DURING DISCHARGE
     Route: 048
  7. CALCIUM CARBONATE [Suspect]
     Active Substance: CALCIUM CARBONATE
     Dosage: 3 GRAM DAILY;
     Route: 048
  8. CALCIUM CARBONATE [Suspect]
     Active Substance: CALCIUM CARBONATE
     Route: 041
  9. VITAMIN D [Suspect]
     Active Substance: VITAMIN D NOS
     Indication: Vitamin D deficiency
     Route: 065
  10. DENOSUMAB [Concomitant]
     Active Substance: DENOSUMAB
     Indication: Osteoporosis
     Route: 065
  11. MAGNESIUM [Concomitant]
     Active Substance: MAGNESIUM
     Indication: Hypomagnesaemia
     Route: 065

REACTIONS (7)
  - Hypoparathyroidism [Recovered/Resolved]
  - Hypocalcaemia [Recovered/Resolved]
  - Diarrhoea [Recovered/Resolved]
  - Nausea [Recovered/Resolved]
  - Mucosal inflammation [Recovered/Resolved]
  - Hypercalcaemia [Recovered/Resolved]
  - Decreased appetite [Recovered/Resolved]

NARRATIVE: CASE EVENT DATE: 20211008
